FAERS Safety Report 25505434 (Version 2)
Quarter: 2025Q3

REPORT INFORMATION
  Report Type: Spontaneous
  Country: BR (occurrence: BR)
  Receive Date: 20250702
  Receipt Date: 20250819
  Transmission Date: 20251021
  Serious: Yes (Other)
  Sender: ABBVIE
  Company Number: BR-ABBOTT-2025A-1399541

PATIENT
  Sex: Male

DRUGS (1)
  1. SYNTHROID [Suspect]
     Active Substance: LEVOTHYROXINE SODIUM
     Indication: Product used for unknown indication
     Route: 048

REACTIONS (4)
  - Tongue discolouration [Unknown]
  - Product quality issue [Unknown]
  - Renal failure [Unknown]
  - Wrong technique in product usage process [Unknown]
